FAERS Safety Report 17432022 (Version 1)
Quarter: 2020Q1

REPORT INFORMATION
  Report Type: Spontaneous
  Country: US (occurrence: US)
  Receive Date: 20200218
  Receipt Date: 20200218
  Transmission Date: 20200409
  Serious: Yes (Other)
  Sender: FDA-Public Use
  Company Number: US-PFIZER INC-2020051947

PATIENT
  Age: 37 Year
  Sex: Female

DRUGS (1)
  1. ANBESOL MAXIMUM STRENGTH [Suspect]
     Active Substance: BENZOCAINE
     Dosage: UNK

REACTIONS (7)
  - Malaise [Unknown]
  - Infection [Unknown]
  - Tremor [Unknown]
  - Pyrexia [Unknown]
  - Poisoning [Unknown]
  - Heart rate increased [Unknown]
  - Toothache [Unknown]
